FAERS Safety Report 16785605 (Version 1)
Quarter: 2019Q4

REPORT INFORMATION
  Report Type: Spontaneous
  Country: US (occurrence: US)
  Receive Date: 20190908
  Receipt Date: 20190908
  Transmission Date: 20200122
  Serious: Yes (Disabling, Other)
  Sender: FDA-Public Use
  Company Number: None

PATIENT
  Age: 61 Year
  Sex: Female
  Weight: 94.5 kg

DRUGS (18)
  1. DESMOPRESSIN 0.1 MG [Concomitant]
  2. ONDANSETRON. [Concomitant]
     Active Substance: ONDANSETRON
  3. GABAPENTIN 300 MG [Concomitant]
     Active Substance: GABAPENTIN
  4. PIOGLITAZONE 30 MG [Concomitant]
     Active Substance: PIOGLITAZONE
  5. FOLIC ACID 1 MG [Concomitant]
  6. ALEVE [Concomitant]
     Active Substance: NAPROXEN SODIUM
  7. CORICIDIN HBP [Concomitant]
     Active Substance: ACETAMINOPHEN\CHLORPHENIRAMINE MALEATE
  8. CARVEDILOL 25 MG [Concomitant]
     Active Substance: CARVEDILOL
  9. OZEMPIC 1 MG INJECTION [Concomitant]
  10. ROSUVASTATIN 40 MG [Concomitant]
     Active Substance: ROSUVASTATIN
  11. POTASSIUM [Concomitant]
     Active Substance: POTASSIUM
  12. PROGESTERONE 100 MG [Concomitant]
     Active Substance: PROGESTERONE
  13. MIGRANAL  4 MG/ML SPRAY [Concomitant]
  14. TRESIBA INSULIN [Concomitant]
  15. VENLAFAXINE 225 MG [Concomitant]
  16. AIMOVIG [Suspect]
     Active Substance: ERENUMAB-AOOE
     Indication: MIGRAINE
     Dosage: ?          QUANTITY:2 INJECTION(S);OTHER FREQUENCY:ONCE A MONTH;?
     Route: 061
     Dates: start: 20181012, end: 20181115
  17. METFORMIN [Concomitant]
     Active Substance: METFORMIN HYDROCHLORIDE
  18. INOVKANA 100 MG [Concomitant]

REACTIONS (12)
  - Fall [None]
  - Pain [None]
  - Quality of life decreased [None]
  - Paralysis [None]
  - Adverse drug reaction [None]
  - Wheelchair user [None]
  - Injection site pain [None]
  - Dysstasia [None]
  - Loss of personal independence in daily activities [None]
  - Muscle spasms [None]
  - Walking aid user [None]
  - Pain in extremity [None]

NARRATIVE: CASE EVENT DATE: 20181115
